FAERS Safety Report 19652055 (Version 1)
Quarter: 2021Q3

REPORT INFORMATION
  Report Type: Spontaneous
  Country: US (occurrence: US)
  Receive Date: 20210803
  Receipt Date: 20210803
  Transmission Date: 20211014
  Serious: Yes (Disabling, Other)
  Sender: FDA-Public Use
  Company Number: US-SA-2021SA252429

PATIENT
  Age: 64 Year
  Sex: Male

DRUGS (3)
  1. LANTUS SOLOSTAR [Suspect]
     Active Substance: INSULIN GLARGINE
     Dosage: 80 IU, BID
  2. LANTUS SOLOSTAR [Suspect]
     Active Substance: INSULIN GLARGINE
     Indication: TYPE 2 DIABETES MELLITUS
     Dosage: 40 IU, BID
     Dates: start: 1998
  3. LANTUS SOLOSTAR [Suspect]
     Active Substance: INSULIN GLARGINE
     Dosage: 60 IU, BID

REACTIONS (8)
  - Inappropriate schedule of product administration [Unknown]
  - Pain [Unknown]
  - Impaired quality of life [Unknown]
  - Grip strength decreased [Unknown]
  - Neuropathy peripheral [Unknown]
  - Toe amputation [Unknown]
  - Hypoaesthesia [Unknown]
  - Visual impairment [Unknown]
